FAERS Safety Report 6643303-2 (Version None)
Quarter: 2010Q1

REPORT INFORMATION
  Report Type: 
  Country: None (occurrence: None)
  Receive Date: 20100319
  Receipt Date: 20100310
  Transmission Date: 20100710
  Serious: Yes (Life-Threatening, Other)
  Sender: FDA-Public Use
  Company Number: US-ROCHE-675160

PATIENT
  Sex: Female

DRUGS (5)
  1. PEGASYS [Suspect]
     Indication: HEPATITIS C
     Dosage: FORM: PRE-FILLED SYRINGE; PATIENT IN WEEK 20 OF THERAPY
     Route: 065
     Dates: start: 20091028
  2. TORADOL [Suspect]
     Indication: DRUG USE FOR UNKNOWN INDICATION
     Dosage: FORM: PILLS
     Route: 065
  3. RIBAPAK [Suspect]
     Indication: HEPATITIS C
     Dosage: PATIENT IN WEEK 20 OF THERAPY; DIVIDED DOSES
     Route: 065
     Dates: start: 20091028
  4. CYMBALTA [Concomitant]
  5. VICODIN [Concomitant]

REACTIONS (24)
  - APHASIA [None]
  - ASTHENIA [None]
  - BEDRIDDEN [None]
  - DIARRHOEA [None]
  - DYSPNOEA [None]
  - HYPOVENTILATION [None]
  - INSOMNIA [None]
  - MALAISE [None]
  - MUSCULOSKELETAL STIFFNESS [None]
  - NAUSEA [None]
  - NIGHT SWEATS [None]
  - OXYGEN SATURATION DECREASED [None]
  - PAIN IN EXTREMITY [None]
  - PAINFUL RESPIRATION [None]
  - PAROSMIA [None]
  - SINUS HEADACHE [None]
  - THROMBOSIS [None]
  - TOOTH EXTRACTION [None]
  - TRANSFUSION [None]
  - TYPE 1 DIABETES MELLITUS [None]
  - VISION BLURRED [None]
  - VITAMIN B12 DECREASED [None]
  - VOMITING [None]
  - WEIGHT DECREASED [None]
